FAERS Safety Report 21535295 (Version 1)
Quarter: 2022Q4

REPORT INFORMATION
  Report Type: Spontaneous
  Country: US (occurrence: US)
  Receive Date: 20221101
  Receipt Date: 20221101
  Transmission Date: 20230113
  Serious: No
  Sender: FDA-Public Use
  Company Number: US-MIGRATION_PFIZER-2022BHV001984

PATIENT
  Age: 39 Year
  Sex: Female

DRUGS (2)
  1. NURTEC ODT [Suspect]
     Active Substance: RIMEGEPANT SULFATE
     Indication: Product used for unknown indication
     Route: 065
     Dates: start: 20220530
  2. NURTEC ODT [Suspect]
     Active Substance: RIMEGEPANT SULFATE
     Indication: Prophylaxis
     Route: 065
     Dates: end: 202207

REACTIONS (5)
  - Tongue discomfort [Recovered/Resolved]
  - Burning sensation [Recovered/Resolved]
  - Bedridden [Recovered/Resolved]
  - Off label use [Recovered/Resolved]
  - Drug tolerance [Unknown]

NARRATIVE: CASE EVENT DATE: 20220101
